FAERS Safety Report 5664687-8 (Version None)
Quarter: 2008Q1

REPORT INFORMATION
  Report Type: 
  Country: None (occurrence: None)
  Receive Date: 20080314
  Receipt Date: 20070303
  Transmission Date: 20080703
  Serious: Yes (Other)
  Sender: FDA-Public Use
  Company Number: TR-ROCHE-551382

PATIENT
  Age: 20 Year
  Sex: Male

DRUGS (2)
  1. ISOTRETINOIN [Suspect]
     Indication: ACNE
     Route: 065
  2. ISOTRETINOIN [Suspect]
     Route: 065

REACTIONS (2)
  - DEMYELINATING POLYNEUROPATHY [None]
  - SACROILIITIS [None]
